FAERS Safety Report 7978495-6 (Version None)
Quarter: 2011Q4

REPORT INFORMATION
  Report Type: 
  Country: None (occurrence: None)
  Receive Date: 20111214
  Receipt Date: 20111202
  Transmission Date: 20120403
  Serious: Yes (Hospitalization, Other)
  Sender: FDA-Public Use
  Company Number: CN-PFIZER INC-2011294541

PATIENT
  Age: 90 Year
  Sex: Male

DRUGS (8)
  1. ATORVASTATIN CALCIUM [Interacting]
     Indication: HYPERLIPIDAEMIA
     Dosage: 40 MG, 1X/DAY
     Route: 048
     Dates: start: 20100503, end: 20100504
  2. AMIODARONE HCL [Interacting]
     Indication: VENTRICULAR TACHYCARDIA
     Dosage: UNK
     Route: 042
     Dates: start: 20100506, end: 20100510
  3. HEPARIN [Concomitant]
     Indication: ANTICOAGULANT THERAPY
     Dosage: UNK
     Dates: start: 20100503
  4. AMIODARONE HCL [Suspect]
     Indication: VENTRICULAR TACHYCARDIA
     Dosage: 0.2 G, 3X/DAY
     Route: 048
     Dates: start: 20100506, end: 20100511
  5. CLOPIDOGREL BISULFATE [Concomitant]
     Indication: ANTIPLATELET THERAPY
     Dosage: UNK
     Dates: start: 20100503
  6. AMIODARONE HCL [Interacting]
     Dosage: 0.2 G, 1X/DAY
     Route: 048
     Dates: start: 20100512, end: 20100521
  7. ATORVASTATIN CALCIUM [Interacting]
     Dosage: 20 MG, 1X/DAY
     Route: 048
     Dates: start: 20100504, end: 20100512
  8. ASPIRIN [Concomitant]
     Indication: ANTIPLATELET THERAPY
     Dosage: UNK
     Dates: start: 20100503

REACTIONS (2)
  - HEPATIC FUNCTION ABNORMAL [None]
  - DRUG INTERACTION [None]
